FAERS Safety Report 12978039 (Version 1)
Quarter: 2016Q4

REPORT INFORMATION
  Report Type: Spontaneous
  Country: US (occurrence: US)
  Receive Date: 20161128
  Receipt Date: 20161128
  Transmission Date: 20170207
  Serious: Yes (Other)
  Sender: FDA-Public Use
  Company Number: US-PROCTER+GAMBLE-GS16137258

PATIENT
  Sex: Female
  Weight: 97.1 kg

DRUGS (2)
  1. METAMUCIL [Suspect]
     Active Substance: PLANTAGO SEED
     Indication: DIARRHOEA
     Route: 048
  2. REMODULIN [Suspect]
     Active Substance: TREPROSTINIL
     Indication: PULMONARY ARTERIAL HYPERTENSION
     Dosage: 0.084 ?G/KG/MIN
     Route: 050
     Dates: start: 20150324

REACTIONS (6)
  - Off label use [Unknown]
  - Drug ineffective for unapproved indication [Unknown]
  - Herpes zoster [Unknown]
  - Diarrhoea [Unknown]
  - Bile duct stenosis [Unknown]
  - Bile output increased [Unknown]

NARRATIVE: CASE EVENT DATE: 2016
